FAERS Safety Report 8871877 (Version 2)
Quarter: 2012Q4

REPORT INFORMATION
  Report Type: 
  Country: ES (occurrence: ES)
  Receive Date: 20121029
  Receipt Date: 20121105
  Transmission Date: 20130627
  Serious: Yes (Hospitalization)
  Sender: FDA-Public Use
  Company Number: ES-JNJFOC-20121009859

PATIENT
  Age: 81 Year
  Sex: Male

DRUGS (3)
  1. DUROGESIC [Suspect]
     Indication: PAIN
     Route: 062
     Dates: start: 20120217, end: 20120217
  2. DITROPAN [Interacting]
     Indication: PRODUCT USED FOR UNKNOWN INDICATION
     Route: 048
     Dates: start: 2008
  3. DOBUPAL [Interacting]
     Indication: DEPRESSION
     Route: 048
     Dates: start: 2008

REACTIONS (3)
  - Confusional state [Recovered/Resolved]
  - Drug interaction [Recovered/Resolved]
  - Inappropriate schedule of drug administration [Unknown]
